FAERS Safety Report 8479437-X (Version None)
Quarter: 2012Q2

REPORT INFORMATION
  Report Type: 
  Country: None (occurrence: None)
  Receive Date: 20120629
  Receipt Date: 20120618
  Transmission Date: 20120825
  Serious: Yes (Other)
  Sender: FDA-Public Use
  Company Number: JP-VERTEX PHARMACEUTICALS INC.-AE-2012-006845

PATIENT
  Age: 36 Year
  Sex: Female

DRUGS (7)
  1. REBETOL [Concomitant]
     Indication: HEPATITIS C
     Route: 048
     Dates: start: 20120319
  2. TELAVIC (TELAPREVIR) [Suspect]
     Route: 048
     Dates: start: 20120324, end: 20120611
  3. PEG-INTRON [Concomitant]
     Route: 058
     Dates: start: 20120424, end: 20120509
  4. PEG-INTRON [Concomitant]
     Route: 058
     Dates: start: 20120605
  5. TELAVIC (TELAPREVIR) [Suspect]
     Indication: HEPATITIS C
     Route: 048
     Dates: start: 20120319, end: 20120323
  6. PEG-INTRON [Concomitant]
     Route: 058
     Dates: start: 20120515, end: 20120529
  7. PEG-INTRON [Concomitant]
     Indication: HEPATITIS C
     Route: 058
     Dates: start: 20120319, end: 20120417

REACTIONS (1)
  - WHITE BLOOD CELL COUNT DECREASED [None]
